FAERS Safety Report 8215702 (Version 7)
Quarter: 2013Q1

REPORT INFORMATION
  Report Type: Spontaneous
  Country: US (occurrence: None)
  Receive Date: 20111024
  Receipt Date: 20130322
  Transmission Date: 20140127
  Serious: Yes (Hospitalization, Other)
  Sender: FDA-Public Use
  Company Number: CIP11001751

PATIENT
  Age: 63 Year
  Sex: Female

DRUGS (57)
  1. ACTONEL [Suspect]
     Indication: OSTEOPOROSIS
     Dosage: 35 MG, ONCE A WEEK, ORAL
     Route: 048
     Dates: start: 20021021, end: 200803
  2. ACTONEL [Suspect]
     Indication: OSTEOPOROSIS
     Dosage: 30 MG, ORAL
     Route: 048
     Dates: start: 20021212, end: 20031006
  3. FOSAMAX [Suspect]
     Dosage: 70 MG WEEKLY, ORAL, 10 MG, ORAL
     Route: 048
     Dates: start: 19991119, end: 20020806
  4. TRIAMCINOLONE [Concomitant]
  5. PAXIL [Concomitant]
  6. ERY-TAB (ERYTHROMYCIN) [Concomitant]
  7. ETHEDENT (SODIUM FLUORIDE) [Concomitant]
  8. VIOXX [Concomitant]
  9. LIPITOR [Concomitant]
  10. ROXICET [Concomitant]
  11. HYDROCODONE W/APAP (HYDROCODONE, PARACETAMOL) [Concomitant]
  12. HYDROXYZINE [Concomitant]
  13. CLOBETASOL (CLOBETASOL) [Concomitant]
  14. CIPROFLOXACIN EXTENDED-RELEASE [Concomitant]
  15. ACULAR /01001802/ (LETOROLAC TROMETHAMINE) [Concomitant]
  16. DIPROLENE (BETAMETHASONE DIPROPIONATE) [Concomitant]
  17. LOPROX (CICLOPIROX OLAMINE) [Concomitant]
  18. ZOVIRAX /00587301/ (ACICLOVIR) [Concomitant]
  19. ALUMINUM CHLORIDE (ALUMINUM CHLORIDE) [Concomitant]
  20. TRAMADOL HYDROCHLORIDE [Concomitant]
  21. FLUOXETINE [Concomitant]
  22. NITROFURANTOIN [Concomitant]
  23. BEXTRA /01401501/ (VALDECOXIB) [Concomitant]
  24. ZITHROMAX [Concomitant]
  25. NASONEX [Concomitant]
  26. XALATAN /01297301/ (LATANOPROST) [Concomitant]
  27. FLUCONAZOLE [Concomitant]
  28. CLOTRIMAZOLE W/BETAMETHASONE DIPROPIONAT (BETAMETHASONE DIPROPIONATE, CLOTRIMAZOLE) [Concomitant]
  29. ZOCOR [Concomitant]
  30. METHYLPREDNISOLONE [Concomitant]
  31. OXYCODONE AND ACETAMINOPHEN [Concomitant]
  32. ACIPHEX [Concomitant]
  33. NEXIUM /01479303 (ESOMEPRAZOLE SODIUM) [Concomitant]
  34. NABUMETONE [Concomitant]
  35. PROMETHAZINE - CODEINT /01129901/ (CODEINE PHOSPHATE, PROMETHAZINE HYDROCHLORIDE) [Concomitant]
  36. LEVAQUIN [Concomitant]
  37. LIDODERM [Concomitant]
  38. MELOXICAM [Concomitant]
  39. SKELAXIN /00611501/ (METAXALONE) [Concomitant]
  40. DICLOFENAC SODIUM [Concomitant]
  41. LOVENOX [Concomitant]
  42. CRESTOR [Concomitant]
  43. TRAMADOL/APAP (PARACETAMOL, TRAMADOL HYDROCHLORIDE) [Concomitant]
  44. GLUCOSAMINE (GLUCOSAMINE) [Concomitant]
  45. CALCIUM CARBONATE [Concomitant]
  46. ALEVE [Concomitant]
  47. CELEBREX [Concomitant]
  48. ASPIRIN (ACETYLSALICYLIC ACID) [Concomitant]
  49. CRANBERRY /01512301/ (VACCINIUM MACROCARPON) [Concomitant]
  50. MULTIVITAMIN /01229101/ (VITAMINS NOS) [Concomitant]
  51. PROTONIX [Concomitant]
  52. CHONDROITIN SULFATE (CHONDROITIN SULFATE) [Concomitant]
  53. TYLENOL /00030001/ (PARACETAMOL) [Concomitant]
  54. ZINC (ZINC) [Concomitant]
  55. ZELNORM (TEGASERPD MALEATE) [Concomitant]
  56. VITAMIN E /00110501/ TOCOPHEROL) [Concomitant]
  57. VITAMIN B COMPLEX (VITAMIN B COMPLEX) [Concomitant]

REACTIONS (18)
  - Fracture nonunion [None]
  - Pathological fracture [None]
  - METASTATIC NEOPLASM [None]
  - IMPAIRED HEALING [None]
  - Spinal compression fracture [None]
  - FOOT FRACTURE [None]
  - BUNION [None]
  - OSTEONECROSIS [None]
  - OSTEOARTHRITIS [None]
  - BONE CALLUS EXCESSIVE [None]
  - PARAESTHESIA [None]
  - RADICULOPATHY [None]
  - SYNOVIAL CYST [None]
  - VERTEBRAL FORAMINAL STENOSIS [None]
  - FEMUR FRACTURE [None]
  - Stress fracture [None]
  - Fracture displacement [None]
  - FALL [None]
